FAERS Safety Report 7082087-3 (Version None)
Quarter: 2010Q4

REPORT INFORMATION
  Report Type: 
  Country: None (occurrence: None)
  Receive Date: 20101103
  Receipt Date: 20101024
  Transmission Date: 20110411
  Serious: No
  Sender: FDA-Public Use
  Company Number: US-PFIZER INC-2010131219

PATIENT
  Sex: Female
  Weight: 107.94 kg

DRUGS (7)
  1. CHANTIX [Suspect]
     Dosage: 0.5 MG, 1X/DAY
     Route: 048
     Dates: start: 20100901, end: 20101001
  2. CHANTIX [Suspect]
     Dosage: 0.5 MG, 2X/DAY
     Route: 048
     Dates: start: 20101001
  3. XANAX [Suspect]
     Indication: INSOMNIA
     Dosage: UNK
     Route: 048
  4. XANAX [Suspect]
     Indication: ANXIETY
  5. XANAX [Suspect]
     Indication: PANIC ATTACK
  6. SYNTHROID [Concomitant]
     Indication: THYROID DISORDER
     Dosage: UNK
  7. HYDROCODONE [Concomitant]
     Indication: BACK DISORDER
     Dosage: UNK

REACTIONS (3)
  - DEPENDENCE [None]
  - DRUG INEFFECTIVE [None]
  - STRESS [None]
